FAERS Safety Report 8588975-0 (Version None)
Quarter: 2012Q3

REPORT INFORMATION
  Report Type: 
  Country: None (occurrence: None)
  Receive Date: 20120813
  Receipt Date: 20120807
  Transmission Date: 20120928
  Serious: Yes (Other)
  Sender: FDA-Public Use
  Company Number: JP-VERTEX PHARMACEUTICALS INC.-AE-2012-010909

PATIENT
  Age: 59 Year
  Sex: Female

DRUGS (7)
  1. TELAVIC [Suspect]
     Route: 048
     Dates: start: 20120621
  2. PEGINTERFERON ALFA-2B [Concomitant]
     Route: 058
     Dates: start: 20120517
  3. RIBAVIRIN [Concomitant]
     Route: 048
     Dates: start: 20120607, end: 20120627
  4. GLYCYRON [Concomitant]
     Route: 048
     Dates: end: 20120613
  5. TELAVIC [Suspect]
     Indication: HEPATITIS C
     Route: 048
     Dates: start: 20120517, end: 20120620
  6. RIBAVIRIN [Concomitant]
     Route: 048
     Dates: start: 20120517, end: 20120606
  7. URSO 250 [Concomitant]
     Route: 048
     Dates: end: 20120613

REACTIONS (1)
  - HYPERCREATININAEMIA [None]
